FAERS Safety Report 6671743-4 (Version None)
Quarter: 2010Q2

REPORT INFORMATION
  Report Type: 
  Country: None (occurrence: None)
  Receive Date: 20100406
  Receipt Date: 20100406
  Transmission Date: 20101027
  Serious: Yes (Death)
  Sender: FDA-Public Use
  Company Number: None

PATIENT
  Age: 76 Year
  Sex: Male
  Weight: 78.4723 kg

DRUGS (4)
  1. CRESTOR [Suspect]
     Indication: BLOOD CHOLESTEROL INCREASED
     Dates: start: 20081002, end: 20090805
  2. FLOMAX [Concomitant]
  3. LACUTOSE [Concomitant]
  4. ATENOLOL [Concomitant]

REACTIONS (1)
  - RHABDOMYOLYSIS [None]
